FAERS Safety Report 9165780 (Version 1)
Quarter: 2013Q1

REPORT INFORMATION
  Report Type: Report from Study
  Country: US (occurrence: US)
  Receive Date: 20130315
  Receipt Date: 20130315
  Transmission Date: 20140127
  Serious: Yes (Death, Other)
  Sender: FDA-Public Use
  Company Number: US-ROCHE-1201548

PATIENT
  Sex: 0

DRUGS (5)
  1. BEVACIZUMAB [Suspect]
     Indication: NON-SMALL CELL LUNG CANCER
     Dosage: OVER 90 MINUTES ON DAY 8 AFTER THE CETUXIMAB INFUSION OF EACH 3 WEEK CYCLE FOR SIX CYCLES
     Route: 042
  2. CETUXIMAB [Suspect]
     Indication: NON-SMALL CELL LUNG CANCER
     Dosage: OVER 120 MINUTES ON DAY 1, IN EACH 3 WEEKS
     Route: 042
  3. CETUXIMAB [Suspect]
     Route: 042
  4. PACLITAXEL [Suspect]
     Indication: NON-SMALL CELL LUNG CANCER
     Route: 042
  5. CARBOPLATIN [Suspect]
     Indication: NON-SMALL CELL LUNG CANCER
     Dosage: AUC 6, OVER 30 MINUTES ON DAY 1 OF EACH 3 WEEK CYCLE FOR EITHER SIX CYCLES IN SIX CYCLE ARM OR THE F
     Route: 042

REACTIONS (20)
  - Intestinal perforation [Fatal]
  - Sepsis [Fatal]
  - Acute respiratory distress syndrome [Fatal]
  - Metastases to meninges [Fatal]
  - Diabetic complication [Fatal]
  - Respiratory distress [Fatal]
  - Hypersensitivity [Unknown]
  - Pulmonary embolism [Unknown]
  - Myocardial infarction [Unknown]
  - Fatigue [Unknown]
  - Dermatitis acneiform [Unknown]
  - Respiratory failure [Unknown]
  - Infusion related reaction [Unknown]
  - Diarrhoea [Unknown]
  - Nausea [Unknown]
  - Hypomagnesaemia [Unknown]
  - Dehydration [Unknown]
  - Anaphylactic reaction [Unknown]
  - Deep vein thrombosis [Unknown]
  - Vomiting [Unknown]
